FAERS Safety Report 16464550 (Version 1)
Quarter: 2019Q2

REPORT INFORMATION
  Report Type: Spontaneous
  Country: MY (occurrence: MY)
  Receive Date: 20190621
  Receipt Date: 20190621
  Transmission Date: 20190711
  Serious: Yes (Other)
  Sender: FDA-Public Use
  Company Number: PHHY2019MY143294

PATIENT
  Age: 62 Year
  Sex: Male

DRUGS (2)
  1. CEFAZOLIN SANDOZ [Suspect]
     Active Substance: CEFAZOLIN
     Indication: DEVICE RELATED INFECTION
     Dosage: 2 G, QD
     Route: 042
  2. CEFAZOLIN SANDOZ [Suspect]
     Active Substance: CEFAZOLIN
     Dosage: UNK, QD
     Route: 042

REACTIONS (2)
  - Skin exfoliation [Recovering/Resolving]
  - Rash [Recovering/Resolving]
